FAERS Safety Report 5410442-3 (Version None)
Quarter: 2007Q3

REPORT INFORMATION
  Report Type: 
  Country: None (occurrence: None)
  Receive Date: 20070810
  Receipt Date: 20070108
  Transmission Date: 20080115
  Serious: No
  Sender: FDA-Public Use
  Company Number: A0582866A

PATIENT
  Age: 48 Year
  Sex: Female

DRUGS (3)
  1. PAXIL [Suspect]
     Indication: DRUG USE FOR UNKNOWN INDICATION
     Dosage: 10MG TWO TIMES PER WEEK
     Route: 048
  2. PAROXETINE [Suspect]
     Dosage: 20MG PER DAY
     Route: 048
  3. UNKNOWN [Concomitant]

REACTIONS (2)
  - AGITATION [None]
  - INITIAL INSOMNIA [None]
